FAERS Safety Report 11289477 (Version 1)
Quarter: 2015Q3

REPORT INFORMATION
  Report Type: Spontaneous
  Country: US (occurrence: US)
  Receive Date: 20150721
  Receipt Date: 20150721
  Transmission Date: 20151125
  Serious: Yes (Hospitalization, Other)
  Sender: FDA-Public Use
  Company Number: US-INCYTE CORPORATION-2015IN002863

PATIENT
  Age: 85 Year
  Sex: Male
  Weight: 57 kg

DRUGS (25)
  1. PLAVIX [Concomitant]
     Active Substance: CLOPIDOGREL BISULFATE
  2. LOPRESSOR [Concomitant]
     Active Substance: METOPROLOL TARTRATE
  3. SIMVASTATIN. [Concomitant]
     Active Substance: SIMVASTATIN
  4. ZINCATE [Concomitant]
  5. MIRALAX [Concomitant]
     Active Substance: POLYETHYLENE GLYCOL 3350
  6. REGLAN [Concomitant]
     Active Substance: METOCLOPRAMIDE HYDROCHLORIDE
  7. CALCIUM [Concomitant]
     Active Substance: CALCIUM
  8. FLOMAX [Concomitant]
     Active Substance: TAMSULOSIN HYDROCHLORIDE
  9. IMDUR [Concomitant]
     Active Substance: ISOSORBIDE MONONITRATE
  10. MULTIVITAMIN                       /00097801/ [Concomitant]
     Active Substance: VITAMINS
  11. VITAMIN D                          /00107901/ [Concomitant]
     Active Substance: ERGOCALCIFEROL
  12. ASPIRIN. [Concomitant]
     Active Substance: ASPIRIN
  13. PEPCID [Concomitant]
     Active Substance: FAMOTIDINE
  14. JAKAFI [Suspect]
     Active Substance: RUXOLITINIB
     Dosage: 20 MG, QD
     Route: 048
     Dates: start: 20150619
  15. NEURONTIN [Concomitant]
     Active Substance: GABAPENTIN
  16. HUMALOG [Concomitant]
     Active Substance: INSULIN LISPRO
  17. NITROGLYCERIN. [Concomitant]
     Active Substance: NITROGLYCERIN
     Dosage: PRN
  18. TYLENOL [Concomitant]
     Active Substance: ACETAMINOPHEN
  19. JAKAFI [Suspect]
     Active Substance: RUXOLITINIB
     Indication: MYELOFIBROSIS
     Dosage: 20 MG, BID
     Route: 048
     Dates: start: 20150507, end: 20150603
  20. ROPINIROLE. [Concomitant]
     Active Substance: ROPINIROLE
  21. MAGNESIUM OXIDE. [Concomitant]
     Active Substance: MAGNESIUM OXIDE
  22. OS-CAL 500 + D [Concomitant]
  23. LANTUS [Concomitant]
     Active Substance: INSULIN GLARGINE
  24. ZANTAC [Concomitant]
     Active Substance: RANITIDINE HYDROCHLORIDE
  25. PRAVACHOL [Concomitant]
     Active Substance: PRAVASTATIN SODIUM

REACTIONS (12)
  - Fall [Unknown]
  - Skin disorder [Recovering/Resolving]
  - Extradural haematoma [Unknown]
  - Back pain [Recovering/Resolving]
  - Pancytopenia [Unknown]
  - Cerebral haemorrhage [Unknown]
  - Nausea [Unknown]
  - Dizziness [Unknown]
  - Subdural haematoma [Unknown]
  - Weight decreased [Unknown]
  - Vomiting [Unknown]
  - Anaemia [Unknown]

NARRATIVE: CASE EVENT DATE: 20150603
